FAERS Safety Report 17865010 (Version 1)
Quarter: 2020Q2

REPORT INFORMATION
  Report Type: Report from Study
  Country: AR (occurrence: AR)
  Receive Date: 20200605
  Receipt Date: 20200605
  Transmission Date: 20200714
  Serious: Yes (Hospitalization, Other)
  Sender: FDA-Public Use
  Company Number: AR-BIOGEN-2020BI00881926

PATIENT
  Age: 57 Year
  Sex: Female

DRUGS (8)
  1. QUETIAPINE. [Concomitant]
     Active Substance: QUETIAPINE
     Indication: PRODUCT USED FOR UNKNOWN INDICATION
     Route: 048
  2. TYSABRI [Suspect]
     Active Substance: NATALIZUMAB
     Indication: MULTIPLE SCLEROSIS
     Dosage: INFUSED OVER ONE HOUR
     Route: 042
     Dates: start: 20191101
  3. LEVOTHYROXINE. [Concomitant]
     Active Substance: LEVOTHYROXINE
     Indication: PRODUCT USED FOR UNKNOWN INDICATION
     Route: 048
  4. ALPLAX [Concomitant]
     Active Substance: ALPRAZOLAM
     Indication: PRODUCT USED FOR UNKNOWN INDICATION
     Route: 065
  5. FOLIC ACID. [Concomitant]
     Active Substance: FOLIC ACID
     Indication: PRODUCT USED FOR UNKNOWN INDICATION
     Route: 065
  6. VITAMIN D [Concomitant]
     Active Substance: VITAMIN D NOS
     Indication: PRODUCT USED FOR UNKNOWN INDICATION
     Route: 048
  7. PREGABALIN. [Concomitant]
     Active Substance: PREGABALIN
     Indication: PRODUCT USED FOR UNKNOWN INDICATION
     Route: 065
  8. FAMPRIDINE [Concomitant]
     Active Substance: DALFAMPRIDINE
     Indication: PRODUCT USED FOR UNKNOWN INDICATION
     Route: 065

REACTIONS (2)
  - Humerus fracture [Not Recovered/Not Resolved]
  - Fall [Recovered/Resolved]

NARRATIVE: CASE EVENT DATE: 20200513
